FAERS Safety Report 5907464-2 (Version None)
Quarter: 2008Q4

REPORT INFORMATION
  Report Type: 
  Country: None (occurrence: None)
  Receive Date: 20081003
  Receipt Date: 20080925
  Transmission Date: 20090506
  Serious: Yes (Life-Threatening, Hospitalization)
  Sender: FDA-Public Use
  Company Number: B0538737A

PATIENT
  Age: 80 Year
  Sex: Male

DRUGS (5)
  1. ARIXTRA [Suspect]
     Indication: DRUG USE FOR UNKNOWN INDICATION
     Dosage: 7.5MG PER DAY
     Route: 058
     Dates: start: 20080625, end: 20080724
  2. TAHOR [Concomitant]
     Route: 065
  3. HEMIGOXINE [Concomitant]
     Route: 065
  4. CORDARONE [Concomitant]
     Route: 065
  5. SYMBICORT [Concomitant]
     Route: 065

REACTIONS (6)
  - APHASIA [None]
  - BRAIN OEDEMA [None]
  - CEREBELLAR SYNDROME [None]
  - CEREBRAL HAEMORRHAGE [None]
  - HEMIANOPIA HOMONYMOUS [None]
  - INTENTIONAL DRUG MISUSE [None]
